FAERS Safety Report 13099302 (Version 2)
Quarter: 2017Q1

REPORT INFORMATION
  Report Type: Spontaneous
  Country: GB (occurrence: GB)
  Receive Date: 20170109
  Receipt Date: 20170116
  Transmission Date: 20170428
  Serious: Yes (Hospitalization)
  Sender: FDA-Public Use
  Company Number: GB-BAUSCH-BL-2017-000682

PATIENT
  Age: 73 Year
  Sex: Female

DRUGS (9)
  1. PREDNISONE. [Suspect]
     Active Substance: PREDNISONE
     Indication: PLASMA CELL MYELOMA
     Route: 065
  2. REVLIMID [Suspect]
     Active Substance: LENALIDOMIDE
     Indication: PLASMA CELL MYELOMA
     Route: 048
     Dates: start: 201511
  3. DEXAMETHASONE. [Suspect]
     Active Substance: DEXAMETHASONE
     Route: 065
  4. CLODRONATE DISODIUM TETRAHYDRATE [Suspect]
     Active Substance: CLODRONATE DISODIUM
     Indication: PLASMA CELL MYELOMA
     Route: 065
  5. DEXAMETHASONE. [Suspect]
     Active Substance: DEXAMETHASONE
     Indication: PLASMA CELL MYELOMA
     Dosage: 6 CYCLES
     Route: 065
     Dates: start: 201412, end: 201505
  6. DEXAMETHASONE. [Suspect]
     Active Substance: DEXAMETHASONE
     Dosage: 3 CYCLES
     Route: 065
     Dates: start: 201507
  7. DEXAMETHASONE. [Suspect]
     Active Substance: DEXAMETHASONE
     Route: 065
     Dates: start: 201511
  8. REVLIMID [Suspect]
     Active Substance: LENALIDOMIDE
     Route: 048
  9. REVLIMID [Suspect]
     Active Substance: LENALIDOMIDE
     Route: 048

REACTIONS (6)
  - Blood creatinine increased [Unknown]
  - Monoclonal immunoglobulin present [Unknown]
  - Asthenia [Unknown]
  - Acute kidney injury [Recovered/Resolved]
  - Dysgeusia [Unknown]
  - Anaemia [Unknown]

NARRATIVE: CASE EVENT DATE: 201604
